FAERS Safety Report 5574813-7 (Version None)
Quarter: 2007Q4

REPORT INFORMATION
  Report Type: 
  Country: None (occurrence: None)
  Receive Date: 20071221
  Receipt Date: 20071221
  Transmission Date: 20080405
  Serious: Yes (Hospitalization)
  Sender: FDA-Public Use
  Company Number: None

PATIENT
  Sex: Male
  Weight: 81.6475 kg

DRUGS (1)
  1. ABILIFY [Suspect]
     Indication: DEMENTIA
     Dosage: 15MG DAILY PO TWO PLUS WEEKS
     Route: 048
     Dates: start: 20070315, end: 20070404

REACTIONS (1)
  - SUICIDAL IDEATION [None]
